FAERS Safety Report 12769907 (Version 1)
Quarter: 2016Q3

REPORT INFORMATION
  Report Type: Spontaneous
  Country: JP (occurrence: JP)
  Receive Date: 20160922
  Receipt Date: 20160922
  Transmission Date: 20161109
  Serious: Yes (Other)
  Sender: FDA-Public Use
  Company Number: JP-BAUSCH-BL-2016-023084

PATIENT
  Sex: Female

DRUGS (1)
  1. HERBESSER [Suspect]
     Active Substance: DILTIAZEM HYDROCHLORIDE
     Indication: PRINZMETAL ANGINA
     Route: 048

REACTIONS (2)
  - Loss of consciousness [Recovered/Resolved]
  - Vision blurred [Recovered/Resolved]
